FAERS Safety Report 7140965-0 (Version None)
Quarter: 2010Q4

REPORT INFORMATION
  Report Type: 
  Country: None (occurrence: None)
  Receive Date: 20101122
  Receipt Date: 20101109
  Transmission Date: 20110411
  Serious: Yes (Hospitalization)
  Sender: FDA-Public Use
  Company Number: 020581

PATIENT
  Sex: Female
  Weight: 101.8 kg

DRUGS (36)
  1. ROTIGOTINE [Suspect]
     Indication: PARKINSON'S DISEASE
     Dosage: (6 MG QD), (6 MG QD)
     Dates: start: 20090928, end: 20091020
  2. ROTIGOTINE [Suspect]
     Indication: PARKINSON'S DISEASE
     Dosage: (6 MG QD), (6 MG QD)
     Dates: start: 20091123, end: 20100920
  3. CARBIDOPA AND LEVODOPA [Concomitant]
  4. PARCOPA [Concomitant]
  5. ATIVAN [Concomitant]
  6. SINEMET [Concomitant]
  7. PRIMIDONE [Concomitant]
  8. VITAMIN B-12 [Concomitant]
  9. OXYBUTYNIN [Concomitant]
  10. CLONAZEPAM [Concomitant]
  11. TRAZODONE HCL [Concomitant]
  12. WELLBUTRIN [Concomitant]
  13. FERROUS SULFATE [Concomitant]
  14. ASPIRIN [Concomitant]
  15. LIPITOR [Concomitant]
  16. COREG [Concomitant]
  17. PLAVIX [Concomitant]
  18. DIGOXIN [Concomitant]
  19. COLACE [Concomitant]
  20. PEPCID [Concomitant]
  21. NOVOLOG [Concomitant]
  22. VITAMIN TAB [Concomitant]
  23. NIASPAN [Concomitant]
  24. DOMPERIDONE [Concomitant]
  25. LOSARTAN [Concomitant]
  26. RANEXA [Concomitant]
  27. SENNA /00142201/ [Concomitant]
  28. COMBIVENT [Concomitant]
  29. LISINOPRIL [Concomitant]
  30. KLOR-CON [Concomitant]
  31. AMBIEN [Concomitant]
  32. COMTAN [Concomitant]
  33. GLIPIZIDE [Concomitant]
  34. EXELON [Concomitant]
  35. LANTUS [Concomitant]
  36. LASIX [Concomitant]

REACTIONS (12)
  - CHEST PAIN [None]
  - DEHYDRATION [None]
  - ELECTROCARDIOGRAM REPOLARISATION ABNORMALITY [None]
  - GROIN PAIN [None]
  - HYPONATRAEMIA [None]
  - HYPOVOLAEMIA [None]
  - LEFT VENTRICULAR HYPERTROPHY [None]
  - NORMOCHROMIC NORMOCYTIC ANAEMIA [None]
  - PROCEDURAL PAIN [None]
  - RENAL FAILURE ACUTE [None]
  - SKIN IRRITATION [None]
  - THROMBOCYTOPENIA [None]
